FAERS Safety Report 15437360 (Version 1)
Quarter: 2018Q3

REPORT INFORMATION
  Report Type: Spontaneous
  Country: US (occurrence: US)
  Receive Date: 20180927
  Receipt Date: 20180927
  Transmission Date: 20181010
  Serious: No
  Sender: FDA-Public Use
  Company Number: US-AMGEN-USASP2018082303

PATIENT
  Age: 74 Year
  Sex: Male

DRUGS (7)
  1. FLOMAX [Concomitant]
     Active Substance: TAMSULOSIN HYDROCHLORIDE
     Dosage: UNK
  2. CABOMETYX [Concomitant]
     Active Substance: CABOZANTINIB S-MALATE
     Indication: TRANSITIONAL CELL CARCINOMA
     Dosage: 60 MG, QD
     Route: 048
     Dates: start: 20180311
  3. XGEVA [Suspect]
     Active Substance: DENOSUMAB
     Indication: PRODUCT USED FOR UNKNOWN INDICATION
     Dosage: UNK
     Route: 065
     Dates: start: 201804
  4. TOPROL XL [Concomitant]
     Active Substance: METOPROLOL SUCCINATE
     Dosage: UNK
  5. CABOMETYX [Concomitant]
     Active Substance: CABOZANTINIB S-MALATE
     Indication: METASTASES TO BONE
  6. LIPITOR [Concomitant]
     Active Substance: ATORVASTATIN CALCIUM
     Dosage: UNK
  7. ATEZOLIZUMAB. [Concomitant]
     Active Substance: ATEZOLIZUMAB
     Dosage: UNK

REACTIONS (5)
  - Hypothyroidism [Unknown]
  - Fatigue [Unknown]
  - Off label use [Unknown]
  - Liver function test abnormal [Unknown]
  - Platelet count abnormal [Unknown]

NARRATIVE: CASE EVENT DATE: 201804
